FAERS Safety Report 6245453-1 (Version None)
Quarter: 2009Q2

REPORT INFORMATION
  Report Type: 
  Country: None (occurrence: None)
  Receive Date: 20090625
  Receipt Date: 20090617
  Transmission Date: 20091009
  Serious: Yes (Hospitalization, Other)
  Sender: FDA-Public Use
  Company Number: PHEH2009US06183

PATIENT
  Sex: Female
  Weight: 85.261 kg

DRUGS (2)
  1. RECLAST [Suspect]
     Route: 042
  2. PROTONIX [Concomitant]

REACTIONS (5)
  - ABASIA [None]
  - ASTHENIA [None]
  - CHILLS [None]
  - LIVER FUNCTION TEST ABNORMAL [None]
  - PYREXIA [None]
